FAERS Safety Report 18382766 (Version 1)
Quarter: 2020Q4

REPORT INFORMATION
  Report Type: Spontaneous
  Country: US (occurrence: US)
  Receive Date: 20201014
  Receipt Date: 20201014
  Transmission Date: 20210114
  Serious: Yes (Disabling)
  Sender: FDA-Public Use
  Company Number: None

PATIENT
  Age: 47 Year
  Sex: Female
  Weight: 55.8 kg

DRUGS (11)
  1. MEMANTINE. [Concomitant]
     Active Substance: MEMANTINE
  2. REXULTI [Suspect]
     Active Substance: BREXPIPRAZOLE
     Indication: DEPRESSION
     Dosage: ?          QUANTITY:1 TABLET(S);?
     Route: 048
  3. IMPLANTABLE DEFIBRILLATOR [Concomitant]
  4. GABAPENTIN. [Concomitant]
     Active Substance: GABAPENTIN
  5. NADALOL [Concomitant]
  6. MAGNESIUM [Concomitant]
     Active Substance: MAGNESIUM
  7. PREDNISONE. [Concomitant]
     Active Substance: PREDNISONE
  8. EFFEXOR XR [Concomitant]
     Active Substance: VENLAFAXINE HYDROCHLORIDE
  9. EMGALITY IM [Concomitant]
  10. TRAZODONE [Concomitant]
     Active Substance: TRAZODONE HYDROCHLORIDE
  11. MELATONIN [Concomitant]
     Active Substance: MELATONIN

REACTIONS (10)
  - Anxiety [None]
  - Drug ineffective [None]
  - Depression [None]
  - Pain [None]
  - Migraine [None]
  - Economic problem [None]
  - Quality of life decreased [None]
  - Disability [None]
  - Emotional disorder [None]
  - Family stress [None]

NARRATIVE: CASE EVENT DATE: 20200928
